FAERS Safety Report 25173937 (Version 1)
Quarter: 2025Q2

REPORT INFORMATION
  Report Type: Spontaneous
  Country: US (occurrence: None)
  Receive Date: 20250408
  Receipt Date: 20250408
  Transmission Date: 20250717
  Serious: Yes (Other)
  Sender: FDA-CTU
  Company Number: None

PATIENT
  Sex: Female

DRUGS (13)
  1. ORENCIA [Suspect]
     Active Substance: ABATACEPT
     Indication: Rheumatoid arthritis
     Dosage: FREQUENCY : DAILY;?
     Route: 042
     Dates: start: 20240612
  2. ORENCIA [Suspect]
     Active Substance: ABATACEPT
     Indication: Rheumatoid factor negative
  3. ORENCIA [Suspect]
     Active Substance: ABATACEPT
     Indication: Polyarthritis
  4. AZITHROMYCIN [Concomitant]
     Active Substance: AZITHROMYCIN
  5. BENZONATATE CAP 200MG [Concomitant]
  6. BREO ELLIPTA INH 100-25 [Concomitant]
  7. BUDESONIDE SUS 0.5MG/2 [Concomitant]
  8. CLOTRIM/BETA CREDI PROP [Concomitant]
  9. CYCLOBENZAPRINE HYDROCHLORIDE [Concomitant]
     Active Substance: CYCLOBENZAPRINE HYDROCHLORIDE
  10. ENBREL INJ 50MG/ML [Concomitant]
  11. ESCITALOPRAM [Concomitant]
     Active Substance: ESCITALOPRAM OXALATE
  12. ESTRADIOL DIS 0.05MG [Concomitant]
  13. ESTRADIOL DIS 0.075MG [Concomitant]

REACTIONS (4)
  - Shoulder operation [None]
  - Therapy interrupted [None]
  - Drug ineffective [None]
  - Pain [None]
